FAERS Safety Report 7509361-8 (Version None)
Quarter: 2011Q2

REPORT INFORMATION
  Report Type: 
  Country: None (occurrence: None)
  Receive Date: 20110527
  Receipt Date: 20110518
  Transmission Date: 20111010
  Serious: Yes (Hospitalization, Other)
  Sender: FDA-Public Use
  Company Number: PHEH2009US02019

PATIENT
  Sex: Male

DRUGS (50)
  1. TRAZODONE HCL [Concomitant]
  2. BENICAR [Concomitant]
  3. VISTARIL [Concomitant]
  4. PROPOFOL [Concomitant]
  5. METFORMIN HCL [Concomitant]
  6. GLUCOTROL [Concomitant]
  7. ZOLOFT [Concomitant]
  8. METOPROLOL TARTRATE [Concomitant]
  9. METOCLOPRAMIDE [Concomitant]
  10. MIDAZOLAM HCL [Concomitant]
  11. DEXAMETHASONE [Concomitant]
  12. FLUOXETINE [Concomitant]
  13. PHENYLEPHRINE HCL [Concomitant]
  14. SODIUM POLYSTYRENE SULFONATE [Concomitant]
  15. TAGAMET [Concomitant]
  16. NORVASC [Concomitant]
  17. SYNTHROID [Concomitant]
  18. SUTENT [Concomitant]
     Dosage: UNK
     Dates: end: 20080301
  19. LABETALOL [Concomitant]
  20. MEPERIDINE HYDROCHLORIDE [Concomitant]
  21. LIDOCAINE [Concomitant]
  22. ACIPHEX [Concomitant]
  23. ZOMETA [Suspect]
     Indication: NEOPLASM MALIGNANT
     Dosage: UNK
     Dates: start: 20030301, end: 20080101
  24. GLIPIZIDE [Concomitant]
  25. VICODIN [Concomitant]
  26. CEFAZOLIN [Concomitant]
  27. ESMOLOL [Concomitant]
  28. GLYCOPYRROLATE [Concomitant]
  29. ACTOS [Concomitant]
  30. DEMEROL [Concomitant]
  31. PIOGLITAZONE [Concomitant]
  32. DARVOCET-N 50 [Concomitant]
  33. DIPHENHYDRAMINE HCL [Concomitant]
  34. ONDANSETRON [Concomitant]
  35. PROSTIGMIN BROMIDE [Concomitant]
  36. LEVOTHYROXINE SODIUM [Concomitant]
  37. LANSOPRAZOLE [Concomitant]
  38. TENORMIN [Concomitant]
  39. INSULIN [Concomitant]
  40. FENTANYL [Concomitant]
  41. NEXIUM [Concomitant]
  42. DILAUDID [Concomitant]
  43. TESTIM [Concomitant]
  44. LEXAPRO [Concomitant]
  45. HEPARIN SODIUM [Concomitant]
  46. BENAZEPRIL HYDROCHLORIDE [Concomitant]
  47. DOCUSATE SODIUM [Concomitant]
  48. LOTENSIN [Concomitant]
  49. OLMESARTAN MEDOXOMIL [Concomitant]
  50. ERYTHROMYCIN [Concomitant]

REACTIONS (75)
  - METASTASES TO LUNG [None]
  - LUNG NEOPLASM [None]
  - IRRITABILITY [None]
  - DIABETES MELLITUS [None]
  - TINEA CRURIS [None]
  - METASTASES TO ADRENALS [None]
  - OSTEONECROSIS OF JAW [None]
  - OROANTRAL FISTULA [None]
  - OSTEOARTHRITIS [None]
  - ABDOMINAL PAIN [None]
  - SINUS TACHYCARDIA [None]
  - OXYGEN SATURATION DECREASED [None]
  - WHITE BLOOD CELL COUNT INCREASED [None]
  - MUSCLE ATROPHY [None]
  - BRONCHITIS [None]
  - ARTERIOSCLEROSIS CORONARY ARTERY [None]
  - HAEMORRHOIDS [None]
  - DYSPHAGIA [None]
  - FATIGUE [None]
  - DEHYDRATION [None]
  - ASTHENIA [None]
  - MUSCULOSKELETAL PAIN [None]
  - PULMONARY FIBROSIS [None]
  - METASTASES TO NECK [None]
  - METASTASES TO BONE [None]
  - SINUSITIS [None]
  - DISCOMFORT [None]
  - PRIMARY SEQUESTRUM [None]
  - DEFORMITY [None]
  - BLOOD GLUCOSE INCREASED [None]
  - NAUSEA [None]
  - VOMITING [None]
  - PLEURAL EFFUSION [None]
  - SUICIDAL IDEATION [None]
  - BLOOD GLUCOSE ABNORMAL [None]
  - COLONIC POLYP [None]
  - ERECTILE DYSFUNCTION [None]
  - DERMATITIS CONTACT [None]
  - CEREBRAL ATROPHY [None]
  - BONE PAIN [None]
  - PERICARDIAL EFFUSION [None]
  - DYSPNOEA [None]
  - RASH ERYTHEMATOUS [None]
  - INTESTINAL OBSTRUCTION [None]
  - PAIN [None]
  - DIARRHOEA [None]
  - POLLAKIURIA [None]
  - DEPRESSED MOOD [None]
  - ACTINIC KERATOSIS [None]
  - NEPHROLITHIASIS [None]
  - ARRHYTHMIA [None]
  - SPINAL OSTEOARTHRITIS [None]
  - HEADACHE [None]
  - AGITATION [None]
  - SINUS RHYTHM [None]
  - DIVERTICULUM [None]
  - TOOTH ABSCESS [None]
  - SKIN INDURATION [None]
  - NEOPLASM MALIGNANT [None]
  - LYMPHADENOPATHY [None]
  - LYMPHADENOPATHY MEDIASTINAL [None]
  - INSOMNIA [None]
  - CONSTIPATION [None]
  - MEAN CELL HAEMOGLOBIN CONCENTRATION INCREASED [None]
  - ABDOMINAL DISCOMFORT [None]
  - ANGINA PECTORIS [None]
  - ANXIETY [None]
  - PRESBYACUSIS [None]
  - GASTRITIS [None]
  - PURULENCE [None]
  - SMALL INTESTINAL OBSTRUCTION [None]
  - NECK PAIN [None]
  - CHEST DISCOMFORT [None]
  - FLUID RETENTION [None]
  - OEDEMA [None]
